FAERS Safety Report 10276664 (Version 2)
Quarter: 2014Q4

REPORT INFORMATION
  Report Type: Spontaneous
  Country: FR (occurrence: FR)
  Receive Date: 20140703
  Receipt Date: 20141230
  Transmission Date: 20150528
  Serious: Yes (Other)
  Sender: FDA-Public Use
  Company Number: FR-ASTRAZENECA-2014SE46557

PATIENT
  Age: 80 Year
  Sex: Female

DRUGS (3)
  1. XYLOCAINE [Suspect]
     Active Substance: LIDOCAINE HYDROCHLORIDE
     Indication: LOCAL ANAESTHESIA
     Dosage: ONCE/SINGLE ADMINISTRATION, VERY LOW DOSE
     Route: 023
     Dates: start: 20140527, end: 20140527
  2. TELEBRIX [Suspect]
     Active Substance: MEGLUMINE IOXITHALAMATE
     Dosage: ONCE/SINGLE ADMINISTRATION
     Route: 042
     Dates: start: 20140527, end: 20140527
  3. BETADINE ALCOOLIQUE 5 PERCENT [Suspect]
     Active Substance: POVIDONE-IODINE
     Indication: INFECTION PROPHYLAXIS
     Route: 003
     Dates: start: 20140527, end: 20140527

REACTIONS (1)
  - Drug eruption [Recovered/Resolved]
